FAERS Safety Report 7389060-6 (Version None)
Quarter: 2011Q2

REPORT INFORMATION
  Report Type: 
  Country: None (occurrence: None)
  Receive Date: 20110401
  Receipt Date: 20110322
  Transmission Date: 20111010
  Serious: Yes (Hospitalization)
  Sender: FDA-Public Use
  Company Number: US-ROCHE-688659

PATIENT
  Sex: Female
  Weight: 82.5 kg

DRUGS (6)
  1. BLINDED TOCILIZUMAB [Suspect]
     Indication: RHEUMATOID ARTHRITIS
     Dosage: LAST DOSE PRIOR TO THE ONSET OF SAE: 28 JANUARY 2010
     Route: 042
     Dates: start: 20080807, end: 20081222
  2. ARAVA [Concomitant]
     Dates: start: 20080214
  3. VICODIN [Concomitant]
     Dosage: FREQUENCY REPORTED AS NECESSARY
     Dates: start: 20050101
  4. TOCILIZUMAB [Suspect]
     Indication: RHEUMATOID ARTHRITIS
     Route: 042
     Dates: start: 20090227
  5. SIMVASTATIN [Concomitant]
     Dates: start: 20090515
  6. EXCEDRIN (MIGRAINE) [Concomitant]
     Dosage: FREQUENCY REPORTED AS NECESSARY
     Dates: start: 20030101

REACTIONS (1)
  - MUSCULOSKELETAL CHEST PAIN [None]
